FAERS Safety Report 19629023 (Version 27)
Quarter: 2025Q1

REPORT INFORMATION
  Report Type: Spontaneous
  Country: US (occurrence: US)
  Receive Date: 20210728
  Receipt Date: 20250321
  Transmission Date: 20250409
  Serious: No
  Sender: PFIZER
  Company Number: US-PFIZER INC-2021581053

PATIENT
  Age: 65 Year
  Sex: Female

DRUGS (18)
  1. IBRANCE [Suspect]
     Active Substance: PALBOCICLIB
     Indication: Breast cancer female
     Dates: start: 20010224
  2. IBRANCE [Suspect]
     Active Substance: PALBOCICLIB
     Indication: Metastases to bone
     Dates: start: 20210219
  3. IBRANCE [Suspect]
     Active Substance: PALBOCICLIB
     Route: 048
     Dates: start: 20210224
  4. IBRANCE [Suspect]
     Active Substance: PALBOCICLIB
     Route: 048
     Dates: start: 20210224
  5. IBRANCE [Suspect]
     Active Substance: PALBOCICLIB
     Route: 048
  6. IBRANCE [Suspect]
     Active Substance: PALBOCICLIB
     Route: 048
  7. LETROZOLE [Concomitant]
     Active Substance: LETROZOLE
  8. METHOTREXATE [Concomitant]
     Active Substance: METHOTREXATE
  9. NAPROXEN [Concomitant]
     Active Substance: NAPROXEN
  10. SIMVASTATIN [Concomitant]
     Active Substance: SIMVASTATIN
  11. LEVOTHYROXINE [Concomitant]
     Active Substance: LEVOTHYROXINE
  12. CELECOXIB [Concomitant]
     Active Substance: CELECOXIB
  13. HYDROXYCHLOROQUINE [Concomitant]
     Active Substance: HYDROXYCHLOROQUINE
  14. PREDNISONE [Concomitant]
     Active Substance: PREDNISONE
  15. ENOXAPARIN [Concomitant]
     Active Substance: ENOXAPARIN
  16. ONDANSETRON [Concomitant]
     Active Substance: ONDANSETRON
  17. DOCUSATE [Concomitant]
     Active Substance: DOCUSATE
  18. CEPHALEXIN [Concomitant]
     Active Substance: CEPHALEXIN

REACTIONS (22)
  - Constipation [Not Recovered/Not Resolved]
  - Depression [Not Recovered/Not Resolved]
  - Gastrointestinal disorder [Recovering/Resolving]
  - Abdominal distension [Unknown]
  - Flatulence [Unknown]
  - Weight decreased [Not Recovered/Not Resolved]
  - Impaired work ability [Unknown]
  - Nail disorder [Not Recovered/Not Resolved]
  - Insomnia [Not Recovered/Not Resolved]
  - Nocturia [Not Recovered/Not Resolved]
  - Snoring [Not Recovered/Not Resolved]
  - Cough [Not Recovered/Not Resolved]
  - Middle insomnia [Not Recovered/Not Resolved]
  - Terminal insomnia [Not Recovered/Not Resolved]
  - Hyperhidrosis [Not Recovered/Not Resolved]
  - Night sweats [Unknown]
  - Menopausal symptoms [Unknown]
  - Stomatitis [Not Recovered/Not Resolved]
  - Alopecia [Not Recovered/Not Resolved]
  - Fatigue [Not Recovered/Not Resolved]
  - Dry skin [Not Recovered/Not Resolved]
  - Decreased appetite [Not Recovered/Not Resolved]

NARRATIVE: CASE EVENT DATE: 20241104
